FAERS Safety Report 9334287 (Version 1)
Quarter: 2013Q2

REPORT INFORMATION
  Report Type: Spontaneous
  Country: US (occurrence: US)
  Receive Date: 20130606
  Receipt Date: 20130606
  Transmission Date: 20140414
  Serious: No
  Sender: FDA-Public Use
  Company Number: US-AMGEN-USASP2013009421

PATIENT
  Age: 57 Year
  Sex: Female

DRUGS (7)
  1. PROLIA [Suspect]
     Indication: OSTEOPOROSIS POSTMENOPAUSAL
     Dosage: UNK
     Dates: start: 201208
  2. GABAPENTIN [Concomitant]
     Dosage: UNK
  3. CALCIUM [Concomitant]
     Dosage: UNK
  4. VITAMIN D                          /00318501/ [Concomitant]
     Dosage: UNK
  5. CRANBERRY                          /01512301/ [Concomitant]
     Dosage: UNK
  6. ACIDOPHILUS [Concomitant]
     Dosage: UNK
  7. NUCYNTA [Concomitant]
     Dosage: UNK

REACTIONS (5)
  - Pain [Unknown]
  - Tinnitus [Not Recovered/Not Resolved]
  - Feeling abnormal [Unknown]
  - Arthralgia [Recovered/Resolved]
  - Erythema [Unknown]
